FAERS Safety Report 5379811-4 (Version None)
Quarter: 2007Q3

REPORT INFORMATION
  Report Type: 
  Country: None (occurrence: None)
  Receive Date: 20070703
  Receipt Date: 20070621
  Transmission Date: 20080115
  Serious: Yes (Hospitalization)
  Sender: FDA-Public Use
  Company Number: GXKR2007FR05377

PATIENT
  Age: 85 Year
  Sex: Female

DRUGS (5)
  1. AMOXICILLIN TRIHYDRATE [Suspect]
     Dosage: ORAL
     Route: 048
     Dates: start: 20070523, end: 20070530
  2. PEFLOXACIN (NGX) (PEFLOXACIN) UNKNOWN [Suspect]
     Dosage: ORAL
     Route: 048
     Dates: start: 20070523, end: 20070530
  3. TRAMADOL HCL [Concomitant]
  4. PRIMPERAN TAB [Concomitant]
  5. MYOLASTAN (TETRAZEPAM) [Suspect]
     Dosage: ORAL
     Route: 048
     Dates: start: 20070522, end: 20070530

REACTIONS (3)
  - LIP OEDEMA [None]
  - PALATAL OEDEMA [None]
  - TONGUE OEDEMA [None]
